FAERS Safety Report 19467568 (Version 2)
Quarter: 2021Q2

REPORT INFORMATION
  Report Type: Spontaneous
  Country: RU (occurrence: RU)
  Receive Date: 20210628
  Receipt Date: 20210630
  Transmission Date: 20210717
  Serious: Yes (Other)
  Sender: FDA-Public Use
  Company Number: RU-ABBVIE-21K-251-3966966-00

PATIENT
  Sex: Male

DRUGS (1)
  1. IMBRUVICA [Suspect]
     Active Substance: IBRUTINIB
     Indication: CHRONIC LYMPHOCYTIC LEUKAEMIA
     Route: 048
     Dates: start: 201706

REACTIONS (6)
  - Respiratory tract infection viral [Unknown]
  - Pharyngitis [Unknown]
  - Lymphocytosis [Unknown]
  - Autoimmune haemolytic anaemia [Recovered/Resolved]
  - Bronchitis [Unknown]
  - Petechiae [Unknown]
